FAERS Safety Report 9822946 (Version 1)
Quarter: 2014Q1

REPORT INFORMATION
  Report Type: Spontaneous
  Country: DK (occurrence: NO)
  Receive Date: 20140116
  Receipt Date: 20140116
  Transmission Date: 20141002
  Serious: Yes (Death, Life-Threatening)
  Sender: FDA-Public Use
  Company Number: NO-FRI-1000052849

PATIENT
  Age: 20 Year
  Sex: Female

DRUGS (19)
  1. ESCITALOPRAM [Suspect]
     Indication: DEPRESSION
  2. CITALOPRAM [Suspect]
     Indication: PRODUCT USED FOR UNKNOWN INDICATION
  3. NOBLIGAN [Suspect]
     Indication: DEPRESSION
     Dosage: STRENGTH: 50 MG-200 MG
  4. IMOVANE [Suspect]
     Indication: DEPRESSION
     Route: 048
  5. LAMICTAL [Suspect]
     Indication: DEPRESSION
     Dosage: STRENGTH: 25 MG, 50 MG, 100 MG
  6. PINEX FORTE [Suspect]
     Indication: DEPRESSION
     Dosage: STRENGTH: 500/30 MG AND PANDEINE
  7. SEROQUEL [Suspect]
     Indication: DEPRESSION
  8. SOBRIL [Suspect]
     Indication: PRODUCT USED FOR UNKNOWN INDICATION
  9. OXYNORM [Suspect]
     Indication: DEPRESSION
     Dosage: STRENGTH: 5 MG-10 MG
  10. REMERON [Suspect]
     Indication: DEPRESSION
  11. SAROTEX [Suspect]
     Indication: DEPRESSION
  12. RIVOTRIL [Suspect]
     Indication: DEPRESSION
  13. ORFIRIL [Suspect]
     Indication: DEPRESSION
     Dosage: STRENGTH: 600 MG-1200 MG
  14. ATARAX [Suspect]
     Indication: DEPRESSION
  15. TRAMADOL [Suspect]
     Indication: DEPRESSION
  16. VIVAL [Suspect]
     Indication: DEPRESSION
  17. NOZINAN [Suspect]
     Indication: DEPRESSION
  18. TRUXAL [Suspect]
     Indication: PRODUCT USED FOR UNKNOWN INDICATION
  19. CATAPRESAN [Suspect]
     Indication: DEPRESSION
     Dosage: STRENGTH: 25 MG TO 50 MG

REACTIONS (2)
  - Completed suicide [Fatal]
  - Self injurious behaviour [Unknown]
